FAERS Safety Report 5830699-4 (Version None)
Quarter: 2008Q3

REPORT INFORMATION
  Report Type: 
  Country: None (occurrence: None)
  Receive Date: 20080801
  Receipt Date: 20071012
  Transmission Date: 20090109
  Serious: No
  Sender: FDA-Public Use
  Company Number: US-BRISTOL-MYERS SQUIBB COMPANY-13940663

PATIENT
  Age: 79 Year
  Sex: Female
  Weight: 109 kg

DRUGS (12)
  1. COUMADIN [Suspect]
     Indication: THROMBOSIS
     Dosage: 7.5MG (THREE 2.5MG TABLETS) DAILY 6 DAYS A WEEK AND 5MG (TWO 2.5MG TABLETS).
     Route: 048
     Dates: start: 20070916
  2. CRESTOR [Concomitant]
  3. LANTUS [Concomitant]
  4. NOVOLOG [Concomitant]
  5. COZAAR [Concomitant]
  6. ASPIRIN [Concomitant]
  7. TOPROL-XL [Concomitant]
  8. LASIX [Concomitant]
  9. NORVASC [Concomitant]
  10. TRICOR [Concomitant]
  11. TYLENOL [Concomitant]
  12. CLONOPIN [Concomitant]

REACTIONS (2)
  - EPISTAXIS [None]
  - HEADACHE [None]
